FAERS Safety Report 16158593 (Version 1)
Quarter: 2019Q2

REPORT INFORMATION
  Report Type: Spontaneous
  Country: None (occurrence: FR)
  Receive Date: 20190404
  Receipt Date: 20190404
  Transmission Date: 20190711
  Serious: Yes (Other)
  Sender: FDA-Public Use
  Company Number: FR-PROVELL PHARMACEUTICALS-2065290

PATIENT
  Age: 47 Year
  Sex: Female

DRUGS (1)
  1. EUTHYROX [Suspect]
     Active Substance: LEVOTHYROXINE SODIUM
     Indication: AUTOIMMUNE THYROIDITIS
     Dates: start: 201703, end: 201801

REACTIONS (22)
  - Somnolence [None]
  - Impaired work ability [Not Recovered/Not Resolved]
  - Social avoidant behaviour [Not Recovered/Not Resolved]
  - Insomnia [None]
  - Blood thyroid stimulating hormone decreased [None]
  - Fatigue [Not Recovered/Not Resolved]
  - Arthralgia [None]
  - Asthenia [None]
  - Gastrointestinal motility disorder [None]
  - Cognitive disorder [None]
  - Weight increased [Not Recovered/Not Resolved]
  - Paraesthesia [None]
  - Memory impairment [None]
  - Anxiety [None]
  - Muscle spasms [Not Recovered/Not Resolved]
  - Headache [Not Recovered/Not Resolved]
  - Blood parathyroid hormone increased [None]
  - Movement disorder [None]
  - Depression [None]
  - Disability [None]
  - Disturbance in attention [None]
  - Mood swings [None]

NARRATIVE: CASE EVENT DATE: 2017
